FAERS Safety Report 16094367 (Version 3)
Quarter: 2019Q2

REPORT INFORMATION
  Report Type: Spontaneous
  Country: US (occurrence: US)
  Receive Date: 20190320
  Receipt Date: 20190624
  Transmission Date: 20190711
  Serious: Yes (Other)
  Sender: FDA-Public Use
  Company Number: US-PFIZER INC-2019116589

PATIENT
  Age: 50 Year
  Sex: Male

DRUGS (1)
  1. LORBRENA [Suspect]
     Active Substance: LORLATINIB
     Dosage: 100 MG, UNK

REACTIONS (3)
  - Device related infection [Unknown]
  - Pyrexia [Unknown]
  - Neoplasm progression [Unknown]
